FAERS Safety Report 10357016 (Version 2)
Quarter: 2014Q3

REPORT INFORMATION
  Report Type: Spontaneous
  Country: US (occurrence: US)
  Receive Date: 20140801
  Receipt Date: 20140801
  Transmission Date: 20150326
  Serious: Yes (Hospitalization, Other)
  Sender: FDA-Public Use
  Company Number: US-CELGENEUS-163-POMAL-14055447

PATIENT
  Age: 59 Year
  Sex: Female

DRUGS (2)
  1. POMALYST [Suspect]
     Active Substance: POMALIDOMIDE
     Dosage: 2 MILLIGRAM
     Route: 048
     Dates: start: 20140711, end: 20140714
  2. POMALYST [Suspect]
     Active Substance: POMALIDOMIDE
     Indication: PLASMA CELL MYELOMA
     Dosage: 2 MILLIGRAM
     Route: 048
     Dates: start: 20140514

REACTIONS (4)
  - Pain in extremity [Not Recovered/Not Resolved]
  - Asthenia [Unknown]
  - Oedema peripheral [Not Recovered/Not Resolved]
  - Disorientation [Unknown]

NARRATIVE: CASE EVENT DATE: 20140518
